FAERS Safety Report 24407806 (Version 1)
Quarter: 2024Q4

REPORT INFORMATION
  Report Type: Spontaneous
  Country: US (occurrence: US)
  Receive Date: 20241007
  Receipt Date: 20241007
  Transmission Date: 20250115
  Serious: Yes (Death, Other)
  Sender: DR REDDYS
  Company Number: US-DRL-USA-LIT/USA/24/0014468

PATIENT
  Age: 4 Year
  Sex: Female

DRUGS (7)
  1. LEVETIRACETAM [Suspect]
     Active Substance: LEVETIRACETAM
     Indication: Encephalopathy
  2. METHYLPREDNISOLONE [Concomitant]
     Active Substance: METHYLPREDNISOLONE
     Indication: Encephalopathy
     Dosage: OVER FIVE DAYS BEGINNING AT HOUR 20 OF SYMPTOMS
     Route: 042
  3. HUMAN IMMUNOGLOBULIN G [Concomitant]
     Active Substance: HUMAN IMMUNOGLOBULIN G
     Indication: Encephalopathy
     Dosage: 2 G/KG OF IVIG DIVIDED OVER TWO DAYS BEGINNING AT HOUR 21 OF SYMPTOMS
     Route: 042
  4. NOREPINEPHRINE [Concomitant]
     Active Substance: NOREPINEPHRINE\NOREPINEPHRINE BITARTRATE
     Indication: Encephalopathy
     Dosage: MAXIMUM DOSING OF 0.04 MCG/KG/MIN
  5. LORAZEPAM [Concomitant]
     Active Substance: LORAZEPAM
     Indication: Encephalopathy
  6. FOSPHENYTOIN [Concomitant]
     Active Substance: FOSPHENYTOIN
     Indication: Encephalopathy
  7. SODIUM CHLORIDE [Concomitant]
     Active Substance: SODIUM CHLORIDE
     Indication: Encephalopathy

REACTIONS (1)
  - Drug ineffective for unapproved indication [Fatal]
